FAERS Safety Report 7518107-9 (Version None)
Quarter: 2011Q2

REPORT INFORMATION
  Report Type: 
  Country: None (occurrence: None)
  Receive Date: 20110602
  Receipt Date: 20110525
  Transmission Date: 20111010
  Serious: Yes (Hospitalization)
  Sender: FDA-Public Use
  Company Number: DE-BAYER-2011-045087

PATIENT
  Age: 72 Year
  Sex: Female
  Weight: 60 kg

DRUGS (4)
  1. DEXAMETHASONE [Suspect]
     Dosage: 16 MG, QD
     Route: 042
     Dates: start: 20101125, end: 20110408
  2. BLINDED SORAFENIB (RAF KINASE INHIBITOR) [Suspect]
     Indication: BREAST CANCER METASTATIC
     Dosage: 800 MG, QD
     Dates: start: 20101126, end: 20110421
  3. DOCETAXEL [Suspect]
     Indication: BREAST CANCER METASTATIC
     Dosage: 75 MG/M2, QD
     Route: 042
     Dates: start: 20101125, end: 20110407
  4. GRANISETRON HCL [Suspect]
     Dosage: 1 MG, QD
     Route: 042
     Dates: start: 20101125, end: 20110407

REACTIONS (2)
  - PERICARDITIS CONSTRICTIVE [None]
  - DYSPNOEA [None]
